FAERS Safety Report 5632933-2 (Version None)
Quarter: 2008Q1

REPORT INFORMATION
  Report Type: 
  Country: None (occurrence: None)
  Receive Date: 20080212
  Receipt Date: 20080131
  Transmission Date: 20080703
  Serious: Yes (Hospitalization)
  Sender: FDA-Public Use
  Company Number: WAES 0802DEU00002

PATIENT
  Age: 35 Year
  Sex: Male

DRUGS (3)
  1. CANCIDAS [Suspect]
     Indication: STEM CELL TRANSPLANT
     Route: 042
     Dates: start: 20071222, end: 20080104
  2. SOLU-DECORTIN-H [Concomitant]
  3. CYCLOSPORINE [Concomitant]

REACTIONS (2)
  - BLOOD BILIRUBIN INCREASED [None]
  - GRAFT VERSUS HOST DISEASE [None]
